FAERS Safety Report 5150568-5 (Version None)
Quarter: 2006Q4

REPORT INFORMATION
  Report Type: 
  Country: None (occurrence: None)
  Receive Date: 20061114
  Receipt Date: 20061031
  Transmission Date: 20070319
  Serious: Yes (Other)
  Sender: FDA-Public Use
  Company Number: US-ELI_LILLY_AND_COMPANY-US200611000633

PATIENT
  Age: 59 Year
  Sex: Female

DRUGS (2)
  1. STRATTERA [Suspect]
     Dosage: 35 MG, UNK
     Dates: end: 20061008
  2. METADATE                                /USA/ [Concomitant]

REACTIONS (2)
  - CARDIOMYOPATHY [None]
  - CONDITION AGGRAVATED [None]
